FAERS Safety Report 9835951 (Version 1)
Quarter: 2014Q1

REPORT INFORMATION
  Report Type: Spontaneous
  Country: US (occurrence: US)
  Receive Date: 20140122
  Receipt Date: 20140122
  Transmission Date: 20141002
  Serious: Yes (Disabling, Other)
  Sender: FDA-Public Use
  Company Number: CHPA2014US000901

PATIENT
  Age: 89 Year
  Sex: Male

DRUGS (6)
  1. EXCEDRIN MIGRAINE [Suspect]
     Indication: HEADACHE
     Dosage: 2 TO 3 UNK, UNK
     Route: 048
  2. EXCEDRIN MIGRAINE [Suspect]
     Indication: DISCOMFORT
  3. EXCEDRIN MIGRAINE [Suspect]
     Indication: OFF LABEL USE
  4. EXCEDRIN EXTRA STRENGTH [Suspect]
     Indication: HEADACHE
     Dosage: 2 TO 3 UNK, UNK
     Route: 048
  5. EXCEDRIN EXTRA STRENGTH [Suspect]
     Indication: DISCOMFORT
  6. EXCEDRIN EXTRA STRENGTH [Suspect]
     Indication: OFF LABEL USE

REACTIONS (3)
  - Blindness [Not Recovered/Not Resolved]
  - Activities of daily living impaired [Not Recovered/Not Resolved]
  - Incorrect dose administered [Unknown]
